FAERS Safety Report 14794952 (Version 1)
Quarter: 2018Q2

REPORT INFORMATION
  Report Type: Spontaneous
  Country: DE (occurrence: DE)
  Receive Date: 20180423
  Receipt Date: 20180423
  Transmission Date: 20180711
  Serious: Yes (Other)
  Sender: FDA-Public Use
  Company Number: PHHY2018DE071072

PATIENT
  Age: 50 Year
  Sex: Male

DRUGS (3)
  1. MAGNESIUM [Interacting]
     Active Substance: MAGNESIUM
     Indication: PRODUCT USED FOR UNKNOWN INDICATION
     Dosage: UNK
     Route: 048
  2. PHENPRO [Interacting]
     Active Substance: PHENPROCOUMON
     Indication: PRODUCT USED FOR UNKNOWN INDICATION
     Dosage: INTAKE ABOUT 8 YEARS
     Route: 048
  3. DOXYCYCLINE. [Suspect]
     Active Substance: DOXYCYCLINE
     Indication: PRODUCT USED FOR UNKNOWN INDICATION
     Dosage: 1 UNIT NOT REPORTED, DAILY
     Route: 048

REACTIONS (5)
  - Psoriasis [Unknown]
  - Muscle spasms [Unknown]
  - Drug interaction [Unknown]
  - International normalised ratio increased [Unknown]
  - Rheumatic disorder [Unknown]
